FAERS Safety Report 8359412-6 (Version None)
Quarter: 2012Q2

REPORT INFORMATION
  Report Type: 
  Country: None (occurrence: None)
  Receive Date: 20120515
  Receipt Date: 20120510
  Transmission Date: 20120825
  Serious: No
  Sender: FDA-Public Use
  Company Number: US-PFIZER INC-2012114763

PATIENT
  Sex: Female

DRUGS (2)
  1. FLECTOR [Suspect]
     Indication: ANKLE FRACTURE
     Dosage: UNK
     Route: 062
  2. FLECTOR [Suspect]
     Indication: LOWER LIMB FRACTURE

REACTIONS (2)
  - APPLICATION SITE PAIN [None]
  - OEDEMA PERIPHERAL [None]
